FAERS Safety Report 6925445-7 (Version None)
Quarter: 2010Q3

REPORT INFORMATION
  Report Type: 
  Country: None (occurrence: None)
  Receive Date: 20100816
  Receipt Date: 20100806
  Transmission Date: 20110219
  Serious: Yes (Hospitalization)
  Sender: FDA-Public Use
  Company Number: GB-ASTRAZENECA-2010SE34507

PATIENT
  Age: 45 Year
  Sex: Female
  Weight: 93 kg

DRUGS (3)
  1. ZOLADEX [Suspect]
     Indication: PREMENSTRUAL SYNDROME
     Route: 058
     Dates: start: 20100514
  2. TIBOLONE [Concomitant]
     Indication: BACK DISORDER
     Route: 048
     Dates: start: 20100514, end: 20100604
  3. LEVOTHYROXINE SODIUM [Concomitant]
     Route: 048

REACTIONS (9)
  - ABDOMINAL DISTENSION [None]
  - ABDOMINAL PAIN UPPER [None]
  - DYSPNOEA [None]
  - FATIGUE [None]
  - FLUID RETENTION [None]
  - HEADACHE [None]
  - OEDEMA [None]
  - SENSATION OF HEAVINESS [None]
  - WEIGHT INCREASED [None]
